FAERS Safety Report 14081368 (Version 1)
Quarter: 2017Q4

REPORT INFORMATION
  Report Type: Spontaneous
  Country: FR (occurrence: FR)
  Receive Date: 20171013
  Receipt Date: 20171013
  Transmission Date: 20180321
  Serious: Yes (Hospitalization)
  Sender: FDA-Public Use
  Company Number: FR-MERCK KGAA-2029925

PATIENT
  Age: 73 Year
  Sex: Female

DRUGS (3)
  1. UN-ALFA [Concomitant]
     Active Substance: ALFACALCIDOL
  2. NOVOTHYROX [Suspect]
     Active Substance: LEVOTHYROXINE SODIUM
     Indication: PRODUCT USED FOR UNKNOWN INDICATION
     Route: 048
  3. TENSTATEN [Concomitant]
     Active Substance: CICLETANINE HYDROCHLORIDE

REACTIONS (6)
  - Hypertension [Recovered/Resolved]
  - Balance disorder [Recovering/Resolving]
  - Blood thyroid stimulating hormone [Recovered/Resolved]
  - Nausea [Recovered/Resolved]
  - Asthenia [Recovering/Resolving]
  - Vomiting [Recovered/Resolved]

NARRATIVE: CASE EVENT DATE: 20170818
